FAERS Safety Report 7958420-4 (Version None)
Quarter: 2011Q4

REPORT INFORMATION
  Report Type: 
  Country: None (occurrence: None)
  Receive Date: 20111205
  Receipt Date: 20111123
  Transmission Date: 20120403
  Serious: Yes (Other)
  Sender: FDA-Public Use
  Company Number: DE-ROCHE-1008086

PATIENT
  Age: 31 Year
  Sex: Female
  Weight: 65 kg

DRUGS (4)
  1. XOLAIR [Suspect]
     Indication: ASTHMA
     Route: 058
     Dates: start: 20101124, end: 20111014
  2. XOLAIR [Suspect]
     Route: 058
     Dates: start: 20111014
  3. FLUTICASONE PROPIONATE/SALMETEROL [Concomitant]
     Dates: start: 20000101
  4. CORTICOIDS [Concomitant]

REACTIONS (7)
  - OEDEMA PERIPHERAL [None]
  - INJECTION SITE PAIN [None]
  - ERYTHEMA [None]
  - SNEEZING [None]
  - ANAPHYLACTOID REACTION [None]
  - PRURITUS [None]
  - COUGH [None]
